FAERS Safety Report 21624969 (Version 1)
Quarter: 2022Q4

REPORT INFORMATION
  Report Type: Spontaneous
  Country: US (occurrence: US)
  Receive Date: 20221122
  Receipt Date: 20221122
  Transmission Date: 20230113
  Serious: Yes (Death, Other)
  Sender: FDA-Public Use
  Company Number: US-AUROBINDO-AUR-APL-2022-049152

PATIENT
  Age: 32 Year
  Sex: Female

DRUGS (1)
  1. CLOBAZAM [Suspect]
     Active Substance: CLOBAZAM
     Indication: Product used for unknown indication
     Dosage: UNK
     Route: 048

REACTIONS (14)
  - Apnoeic attack [Fatal]
  - Brain injury [Fatal]
  - Brain oedema [Fatal]
  - Cardiac arrest [Fatal]
  - Diabetic ketoacidosis [Fatal]
  - Pulmonary embolism [Fatal]
  - Pneumonia necrotising [Fatal]
  - Suicide attempt [Fatal]
  - Hyponatraemia [Fatal]
  - Cyanosis [Fatal]
  - Overdose [Fatal]
  - Toxicity to various agents [Fatal]
  - Bradycardia [Recovered/Resolved]
  - Intentional product misuse [Unknown]
